FAERS Safety Report 24640985 (Version 2)
Quarter: 2024Q4

REPORT INFORMATION
  Report Type: Report from Study
  Country: US (occurrence: US)
  Receive Date: 20241120
  Receipt Date: 20241210
  Transmission Date: 20250114
  Serious: Yes (Other)
  Sender: ABBVIE
  Company Number: US-ABBVIE-6007807

PATIENT
  Age: 38 Year
  Sex: Female
  Weight: 54.431 kg

DRUGS (4)
  1. UPADACITINIB [Suspect]
     Active Substance: UPADACITINIB
     Indication: Colitis ulcerative
     Dosage: FORM STRENGTH: 30 MILLIGRAM?LAST ADMIN DATE: 2023
     Route: 048
     Dates: start: 202310
  2. UPADACITINIB [Suspect]
     Active Substance: UPADACITINIB
     Indication: Colitis ulcerative
     Route: 048
     Dates: start: 20231018, end: 202407
  3. UPADACITINIB [Suspect]
     Active Substance: UPADACITINIB
     Indication: Colitis ulcerative
     Dosage: LAST ADMIN DATE: 2023
     Route: 048
     Dates: start: 202307
  4. UPADACITINIB [Suspect]
     Active Substance: UPADACITINIB
     Indication: Colitis ulcerative
     Route: 048
     Dates: start: 202408

REACTIONS (17)
  - Haemorrhage [Recovered/Resolved]
  - Haematochezia [Recovered/Resolved]
  - Haemorrhage [Recovered/Resolved]
  - Unevaluable event [Unknown]
  - Gastrointestinal disorder [Unknown]
  - Pharyngeal swelling [Recovering/Resolving]
  - Oropharyngeal discomfort [Unknown]
  - Malaise [Recovered/Resolved]
  - Abdominal pain upper [Recovered/Resolved]
  - Therapeutic product effect decreased [Unknown]
  - Hypothyroidism [Recovering/Resolving]
  - Lymphadenopathy [Not Recovered/Not Resolved]
  - Condition aggravated [Recovering/Resolving]
  - Haemorrhage [Unknown]
  - Abdominal pain upper [Unknown]
  - Goitre [Not Recovered/Not Resolved]
  - Malaise [Unknown]

NARRATIVE: CASE EVENT DATE: 20240301
